FAERS Safety Report 7735169-4 (Version None)
Quarter: 2011Q3

REPORT INFORMATION
  Report Type: 
  Country: None (occurrence: None)
  Receive Date: 20110907
  Receipt Date: 20110905
  Transmission Date: 20111222
  Serious: Yes (Other)
  Sender: FDA-Public Use
  Company Number: JP-PFIZER INC-2011207147

PATIENT
  Sex: Female

DRUGS (1)
  1. LYRICA [Suspect]
     Indication: HYPOAESTHESIA
     Dosage: 75 MG, 2X/DAY
     Route: 048

REACTIONS (6)
  - DEAFNESS [None]
  - ASTHENIA [None]
  - CHOKING [None]
  - GAIT DISTURBANCE [None]
  - HYPOAESTHESIA [None]
  - LACRIMATION INCREASED [None]
